FAERS Safety Report 6654640-X (Version None)
Quarter: 2010Q1

REPORT INFORMATION
  Report Type: 
  Country: None (occurrence: None)
  Receive Date: 20100326
  Receipt Date: 20100322
  Transmission Date: 20100710
  Serious: Yes (Life-Threatening, Hospitalization, Other)
  Sender: FDA-Public Use
  Company Number: PHHY2010IN17870

PATIENT
  Age: 10 Month
  Sex: Female

DRUGS (7)
  1. CYCLOSPORINE [Suspect]
     Indication: CORD BLOOD TRANSPLANT THERAPY
  2. CYCLOSPORINE [Suspect]
     Indication: PROPHYLAXIS AGAINST GRAFT VERSUS HOST DISEASE
  3. METHOTREXATE [Suspect]
     Indication: CORD BLOOD TRANSPLANT THERAPY
  4. METHOTREXATE [Suspect]
     Indication: PROPHYLAXIS AGAINST GRAFT VERSUS HOST DISEASE
  5. BUSULFEX [Concomitant]
     Indication: CORD BLOOD TRANSPLANT THERAPY
     Dosage: 14 MG/KG, UNK
  6. CYCLOPHOSPHAMIDE [Concomitant]
     Indication: CORD BLOOD TRANSPLANT THERAPY
     Dosage: 120 MG/KG
  7. ANTITHYMOCYTE IMMUNOGLOBULIN [Concomitant]
     Indication: CORD BLOOD TRANSPLANT THERAPY

REACTIONS (6)
  - BLOOD STEM CELL TRANSPLANT FAILURE [None]
  - CYTOMEGALOVIRUS INFECTION [None]
  - GASTROINTESTINAL HAEMORRHAGE [None]
  - HYPOTENSION [None]
  - RECTAL HAEMORRHAGE [None]
  - THROMBOCYTOPENIA [None]
